FAERS Safety Report 4357998-X (Version None)
Quarter: 2004Q2

REPORT INFORMATION
  Report Type: 
  Country: None (occurrence: None)
  Receive Date: 20040511
  Receipt Date: 20040429
  Transmission Date: 20050107
  Serious: Yes (Hospitalization)
  Sender: FDA-Public Use
  Company Number: WAES 0404USA02606

PATIENT
  Age: 43 Year
  Sex: Female

DRUGS (13)
  1. VIOXX [Suspect]
     Dosage: PO
     Route: 048
  2. CAP BLINDED THERAPY UNK [Suspect]
     Indication: HYPEREOSINOPHILIC SYNDROME
     Dosage: SEE IMAGE
     Route: 048
     Dates: start: 20030131, end: 20030213
  3. CAP BLINDED THERAPY UNK [Suspect]
     Indication: HYPEREOSINOPHILIC SYNDROME
     Dosage: SEE IMAGE
     Route: 048
     Dates: start: 20030214, end: 20030902
  4. CAP BLINDED THERAPY UNK [Suspect]
     Indication: HYPEREOSINOPHILIC SYNDROME
     Dosage: SEE IMAGE
     Route: 048
     Dates: start: 20031003, end: 20040122
  5. , [Concomitant]
  6. , [Concomitant]
  7. ALENE [Suspect]
  8. ATIVAN [Concomitant]
  9. DYAZIDE [Concomitant]
  10. NEURONTIN [Concomitant]
  11. IBUPROFEN [Concomitant]
  12. PREDNISONE [Concomitant]
  13. SPIRONOLACTONE [Concomitant]

REACTIONS (2)
  - BLOOD CREATININE INCREASED [None]
  - NEPHROPATHY [None]
